FAERS Safety Report 21835066 (Version 2)
Quarter: 2023Q1

REPORT INFORMATION
  Report Type: Other
  Country: US (occurrence: None)
  Receive Date: 20230109
  Receipt Date: 20230112
  Transmission Date: 20230418
  Serious: Yes (Death)
  Sender: FDA-Public Use
  Company Number: US-ROCHE-3227743

PATIENT
  Age: 68 Year
  Sex: Male

DRUGS (1)
  1. ERIVEDGE [Suspect]
     Active Substance: VISMODEGIB
     Indication: Basal cell carcinoma
     Dosage: START DATE JUN OR JUL 2022
     Route: 048

REACTIONS (6)
  - Dysphonia [Unknown]
  - Vomiting [Not Recovered/Not Resolved]
  - Death [Fatal]
  - Nausea [Unknown]
  - Illness [Unknown]
  - Fatigue [Unknown]

NARRATIVE: CASE EVENT DATE: 20221201
